FAERS Safety Report 7602108-6 (Version None)
Quarter: 2011Q3

REPORT INFORMATION
  Report Type: 
  Country: None (occurrence: None)
  Receive Date: 20110711
  Receipt Date: 20110711
  Transmission Date: 20111222
  Serious: Yes (Life-Threatening)
  Sender: FDA-Public Use
  Company Number: None

PATIENT
  Age: 45 Year
  Sex: Female
  Weight: 56.699 kg

DRUGS (1)
  1. VIMPAT [Suspect]
     Indication: CONVULSION
     Dosage: 100MG
     Route: 048
     Dates: start: 20110517, end: 20110708

REACTIONS (10)
  - DIZZINESS [None]
  - URTICARIA [None]
  - ATAXIA [None]
  - DYSPEPSIA [None]
  - GASTRITIS [None]
  - EYE SWELLING [None]
  - SWELLING FACE [None]
  - LIP SWELLING [None]
  - PRURITUS [None]
  - ANXIETY [None]
